FAERS Safety Report 13388406 (Version 1)
Quarter: 2017Q1

REPORT INFORMATION
  Report Type: Spontaneous
  Country: US (occurrence: US)
  Receive Date: 20170330
  Receipt Date: 20170330
  Transmission Date: 20170429
  Serious: No
  Sender: FDA-Public Use
  Company Number: US-GLAXOSMITHKLINE-US2017GSK044833

PATIENT
  Sex: Male

DRUGS (1)
  1. ROPINIROLE TABLET [Suspect]
     Active Substance: ROPINIROLE
     Indication: PARKINSON^S DISEASE
     Dosage: 0.5 MG, TID

REACTIONS (4)
  - Blood pressure abnormal [Unknown]
  - Orthostatic hypotension [Unknown]
  - Hallucination, visual [Unknown]
  - Syncope [Unknown]
